FAERS Safety Report 7511715-0 (Version None)
Quarter: 2011Q2

REPORT INFORMATION
  Report Type: 
  Country: None (occurrence: None)
  Receive Date: 20110531
  Receipt Date: 20110523
  Transmission Date: 20111010
  Serious: Yes (Other)
  Sender: FDA-Public Use
  Company Number: US-JNJFOC-20100805145

PATIENT
  Sex: Male

DRUGS (2)
  1. LEVOFLOXACIN [Suspect]
     Indication: PULMONARY CONGESTION
     Route: 048
     Dates: start: 20010101, end: 20031231
  2. LEVOFLOXACIN [Suspect]
     Indication: INFLUENZA
     Route: 048
     Dates: start: 20010101, end: 20031231

REACTIONS (3)
  - TENDONITIS [None]
  - ROTATOR CUFF SYNDROME [None]
  - MUSCLE RUPTURE [None]
